FAERS Safety Report 8573503-6 (Version None)
Quarter: 2012Q2

REPORT INFORMATION
  Report Type: 
  Country: None (occurrence: None)
  Receive Date: 20120423
  Receipt Date: 20101018
  Transmission Date: 20120825
  Serious: Yes (Other)
  Sender: FDA-Public Use
  Company Number: PHHY2010US71107

PATIENT
  Age: 84 Year
  Sex: Female

DRUGS (3)
  1. EXJADE [Suspect]
     Indication: MYELODYSPLASTIC SYNDROME
     Dosage: UNK, ORAL
     Route: 048
     Dates: start: 20100917
  2. REVLIMID [Suspect]
     Indication: MYELODYSPLASTIC SYNDROME
     Dosage: 10 MG DAILY FOR 3 WEEKS, 1 WEEK OFF, ORAL
     Route: 048
     Dates: start: 20100917, end: 20100929
  3. REVLIMID [Suspect]
     Indication: MYELODYSPLASTIC SYNDROME
     Dosage: 10 MG DAILY FOR 3 WEEKS, 1 WEEK OFF, ORAL
     Route: 048
     Dates: start: 20100902

REACTIONS (2)
  - FACE OEDEMA [None]
  - HYPERSENSITIVITY [None]
